FAERS Safety Report 6554547-2 (Version None)
Quarter: 2010Q1

REPORT INFORMATION
  Report Type: 
  Country: None (occurrence: None)
  Receive Date: 20100127
  Receipt Date: 20100113
  Transmission Date: 20100710
  Serious: Yes (Hospitalization, Other)
  Sender: FDA-Public Use
  Company Number: US-BAXTER-2010BH000854

PATIENT
  Age: 71 Year
  Sex: Female
  Weight: 94 kg

DRUGS (2)
  1. DIANEAL [Suspect]
     Indication: PERITONEAL DIALYSIS
     Route: 033
     Dates: start: 20070601, end: 20100109
  2. EXTRANEAL [Suspect]
     Indication: PERITONEAL DIALYSIS
     Route: 033
     Dates: start: 20080101, end: 20100109

REACTIONS (8)
  - BLOOD GLUCOSE DECREASED [None]
  - BLOOD GLUCOSE INCREASED [None]
  - DEVICE INTERACTION [None]
  - MUSCLE CONTRACTURE [None]
  - NAUSEA [None]
  - PERITONITIS BACTERIAL [None]
  - UNRESPONSIVE TO STIMULI [None]
  - VOMITING [None]
